FAERS Safety Report 9460021 (Version 1)
Quarter: 2013Q3

REPORT INFORMATION
  Report Type: Spontaneous
  Country: US (occurrence: None)
  Receive Date: 20130814
  Receipt Date: 20130814
  Transmission Date: 20140515
  Serious: Yes (Death)
  Sender: FDA-Public Use
  Company Number: None

PATIENT
  Age: 69 Year
  Sex: Male
  Weight: 110 kg

DRUGS (6)
  1. DABIGATRAN [Suspect]
  2. ASPIRIN [Concomitant]
  3. ROSUVASTATIN [Concomitant]
  4. SERTRALINE [Concomitant]
  5. ALPRAZOLAM [Concomitant]
  6. ZOLPIDEM [Concomitant]

REACTIONS (2)
  - Intraventricular haemorrhage [None]
  - Basal ganglia haemorrhage [None]
